FAERS Safety Report 19845800 (Version 1)
Quarter: 2021Q3

REPORT INFORMATION
  Report Type: Report from Study
  Country: CO (occurrence: CO)
  Receive Date: 20210916
  Receipt Date: 20210916
  Transmission Date: 20211014
  Serious: Yes (Other)
  Sender: FDA-Public Use
  Company Number: CO-JNJFOC-A-CH2016-143983

PATIENT
  Age: 60 Year
  Sex: Female
  Weight: 59 kg

DRUGS (9)
  1. FUROSEMIDE. [Concomitant]
     Active Substance: FUROSEMIDE
     Indication: PRODUCT USED FOR UNKNOWN INDICATION
     Dosage: 40 MG, QD
     Route: 048
  2. MACITENTAN [Suspect]
     Active Substance: MACITENTAN
     Dosage: 10 UNK
     Route: 048
     Dates: start: 20190315
  3. OMEPRAZOLE. [Concomitant]
     Active Substance: OMEPRAZOLE
     Indication: PRODUCT USED FOR UNKNOWN INDICATION
     Dosage: 20 MG, QD
     Route: 048
  4. NIFEDIPINE. [Concomitant]
     Active Substance: NIFEDIPINE
     Indication: PRODUCT USED FOR UNKNOWN INDICATION
     Dosage: 30 MG, QD
     Route: 048
  5. MACITENTAN [Suspect]
     Active Substance: MACITENTAN
     Dosage: 10 MG, QD
     Route: 048
     Dates: start: 20180822, end: 201810
  6. LEVOTHYROXINE. [Concomitant]
     Active Substance: LEVOTHYROXINE
     Indication: PRODUCT USED FOR UNKNOWN INDICATION
     Dosage: 150 UG, QD
  7. SPIRONOLACTONE. [Concomitant]
     Active Substance: SPIRONOLACTONE
     Indication: PRODUCT USED FOR UNKNOWN INDICATION
     Dosage: 25 MG, QD
     Route: 048
  8. RIVAROXABAN [Concomitant]
     Active Substance: RIVAROXABAN
  9. MACITENTAN [Suspect]
     Active Substance: MACITENTAN
     Indication: PULMONARY ARTERIAL HYPERTENSION
     Dosage: THE LAST ADMINISTRATION DATE WAS IN JULY?2021
     Route: 048
     Dates: start: 20160713

REACTIONS (22)
  - Skin discolouration [Not Recovered/Not Resolved]
  - Dizziness [Unknown]
  - Asphyxia [Not Recovered/Not Resolved]
  - Cough [Not Recovered/Not Resolved]
  - Nausea [Unknown]
  - Tachycardia [Not Recovered/Not Resolved]
  - Bronchitis [Not Recovered/Not Resolved]
  - Cardiac fibrillation [Not Recovered/Not Resolved]
  - Oxygen saturation decreased [Not Recovered/Not Resolved]
  - Hypoaesthesia [Not Recovered/Not Resolved]
  - Pain in extremity [Not Recovered/Not Resolved]
  - Agitation [Not Recovered/Not Resolved]
  - Reflux gastritis [Not Recovered/Not Resolved]
  - Hypertension [Not Recovered/Not Resolved]
  - General physical health deterioration [Unknown]
  - Echocardiogram abnormal [Unknown]
  - Arrhythmia [Not Recovered/Not Resolved]
  - Choking sensation [Not Recovered/Not Resolved]
  - Heart rate irregular [Not Recovered/Not Resolved]
  - Chest pain [Not Recovered/Not Resolved]
  - Peripheral swelling [Not Recovered/Not Resolved]
  - Vasodilatation [Not Recovered/Not Resolved]

NARRATIVE: CASE EVENT DATE: 201807
